FAERS Safety Report 8273618-6 (Version None)
Quarter: 2012Q2

REPORT INFORMATION
  Report Type: 
  Country: None (occurrence: None)
  Receive Date: 20120411
  Receipt Date: 20120201
  Transmission Date: 20120825
  Serious: No
  Sender: FDA-Public Use
  Company Number: US-TEVA-320675USA

PATIENT
  Sex: Female
  Weight: 79.45 kg

DRUGS (12)
  1. PRAMIPEXOLE DIHYDROCHLORIDE [Concomitant]
     Indication: MOVEMENT DISORDER
     Route: 048
  2. ZOLPIDEM [Concomitant]
     Indication: SLEEP DISORDER
     Route: 048
     Dates: start: 20060101
  3. FLUTICASONE FUROATE [Concomitant]
     Indication: ASTHMA
     Route: 045
  4. SYMBICORT [Concomitant]
     Indication: ASTHMA
     Route: 055
  5. DOXYCYCLINE [Concomitant]
     Indication: ROSACEA
     Route: 048
     Dates: start: 20110901, end: 20111201
  6. ATENOLOL [Concomitant]
     Indication: HYPOTENSION
     Dosage: 50 MILLIGRAM;
     Route: 048
     Dates: start: 19950801
  7. PREDNISONE TAB [Concomitant]
     Indication: ASTHMA
     Route: 048
     Dates: end: 20111101
  8. ACYCLOVIR [Concomitant]
     Route: 048
     Dates: start: 20110301
  9. NUVIGIL [Suspect]
     Route: 048
  10. NUVIGIL [Suspect]
     Indication: SLEEP APNOEA SYNDROME
     Route: 048
     Dates: start: 20110926
  11. LYRICA [Concomitant]
     Indication: PAIN
     Route: 048
  12. RINITADINE [Concomitant]
     Indication: GASTROOESOPHAGEAL REFLUX DISEASE
     Route: 048

REACTIONS (6)
  - MYALGIA [None]
  - MUSCLE TIGHTNESS [None]
  - INSOMNIA [None]
  - THERAPY REGIMEN CHANGED [None]
  - DRUG INEFFECTIVE [None]
  - FATIGUE [None]
